FAERS Safety Report 8515947-4 (Version None)
Quarter: 2012Q3

REPORT INFORMATION
  Report Type: 
  Country: None (occurrence: None)
  Receive Date: 20120717
  Receipt Date: 20120625
  Transmission Date: 20120928
  Serious: No
  Sender: FDA-Public Use
  Company Number: US-B.I. PHARMACEUTICALS,INC./RIDGEFIELD-2012-BP-14463PF

PATIENT
  Sex: Female

DRUGS (3)
  1. MEDICATION NOT FURTHER SPECIFIED [Concomitant]
     Indication: BLOOD PRESSURE
  2. SPIRIVA [Suspect]
  3. MEDICATION NOT FURTHER SPECIFIED [Concomitant]
     Indication: GASTROINTESTINAL DISORDER

REACTIONS (1)
  - MALAISE [None]
